FAERS Safety Report 6359163-3 (Version None)
Quarter: 2009Q3

REPORT INFORMATION
  Report Type: 
  Country: None (occurrence: None)
  Receive Date: 20090917
  Receipt Date: 20090915
  Transmission Date: 20100115
  Serious: Yes (Hospitalization)
  Sender: FDA-Public Use
  Company Number: DE-JNJFOC-20090900908

PATIENT
  Age: 81 Year
  Sex: Male

DRUGS (2)
  1. TAVANIC [Suspect]
     Indication: BRONCHITIS
     Route: 048
     Dates: start: 20081212, end: 20081221
  2. MYRTOL [Concomitant]
     Indication: BRONCHITIS
     Dosage: 2*1
     Route: 048
     Dates: start: 20081212, end: 20081221

REACTIONS (2)
  - HEPATITIS CHOLESTATIC [None]
  - PAPILLA OF VATER STENOSIS [None]
